FAERS Safety Report 18062296 (Version 2)
Quarter: 2020Q3

REPORT INFORMATION
  Report Type: Report from Study
  Country: TH (occurrence: TH)
  Receive Date: 20200723
  Receipt Date: 20200812
  Transmission Date: 20201103
  Serious: Yes (Hospitalization, Other)
  Sender: FDA-Public Use
  Company Number: TH-SEATTLE GENETICS-2020SGN01073

PATIENT
  Sex: Female

DRUGS (1)
  1. BRENTUXIMAB VEDOTIN [Suspect]
     Active Substance: BRENTUXIMAB VEDOTIN
     Indication: HODGKIN^S DISEASE REFRACTORY
     Dosage: 150 MILLIGRAM, Q3WEEKS
     Route: 050
     Dates: start: 20190608

REACTIONS (5)
  - Pyrexia [Unknown]
  - Therapy non-responder [Unknown]
  - Therapy change [Unknown]
  - Hypoglycaemia [Unknown]
  - Seizure [Unknown]
